FAERS Safety Report 16609809 (Version 5)
Quarter: 2019Q3

REPORT INFORMATION
  Report Type: Report from Study
  Country: US (occurrence: US)
  Receive Date: 20190722
  Receipt Date: 20190923
  Transmission Date: 20191004
  Serious: Yes (Hospitalization, Other)
  Sender: FDA-Public Use
  Company Number: US-ACTELION-A-NJ2019-193389

PATIENT
  Age: 67 Year
  Sex: Female
  Weight: 79.37 kg

DRUGS (9)
  1. UPTRAVI [Suspect]
     Active Substance: SELEXIPAG
     Dosage: 800 MCG, BID
     Route: 048
  2. UPTRAVI [Suspect]
     Active Substance: SELEXIPAG
     Dosage: 1000 MCG, BID
     Route: 048
  3. NIFEDIPINE. [Concomitant]
     Active Substance: NIFEDIPINE
  4. UPTRAVI [Suspect]
     Active Substance: SELEXIPAG
     Dosage: 1200 MCG, BID
     Route: 048
  5. UPTRAVI [Suspect]
     Active Substance: SELEXIPAG
     Indication: PULMONARY ARTERIAL HYPERTENSION
     Dosage: 1400 MCG, BID
     Route: 048
  6. TADALAFIL. [Concomitant]
     Active Substance: TADALAFIL
  7. PLAVIX [Concomitant]
     Active Substance: CLOPIDOGREL BISULFATE
  8. OFEV [Concomitant]
     Active Substance: NINTEDANIB
  9. OXYGEN. [Concomitant]
     Active Substance: OXYGEN

REACTIONS (15)
  - Glaucoma [Unknown]
  - Musculoskeletal pain [Not Recovered/Not Resolved]
  - Neuralgia [Recovering/Resolving]
  - Stent placement [Unknown]
  - Pain [Recovering/Resolving]
  - Back pain [Unknown]
  - Fluid retention [Recovering/Resolving]
  - Intraocular pressure increased [Unknown]
  - Diarrhoea [Recovering/Resolving]
  - Pain in extremity [Not Recovered/Not Resolved]
  - Joint injury [Recovering/Resolving]
  - Walking disability [Recovering/Resolving]
  - Dyspnoea [Recovering/Resolving]
  - Neuropathy peripheral [Recovering/Resolving]
  - Contusion [Unknown]

NARRATIVE: CASE EVENT DATE: 201903
